FAERS Safety Report 7556314-X (Version None)
Quarter: 2011Q2

REPORT INFORMATION
  Report Type: 
  Country: None (occurrence: None)
  Receive Date: 20110620
  Receipt Date: 20110615
  Transmission Date: 20111010
  Serious: No
  Sender: FDA-Public Use
  Company Number: US-PFIZER INC-2011131896

PATIENT
  Sex: Male
  Weight: 63.4 kg

DRUGS (2)
  1. ISOSORBIDE [Concomitant]
     Indication: BLOOD DISORDER
     Dosage: UNK
     Dates: start: 19990101
  2. IBUPROFEN (ADVIL) [Suspect]
     Indication: PAIN
     Dosage: UNK
     Dates: start: 20060101, end: 20110614

REACTIONS (1)
  - PROSTATIC DISORDER [None]
